FAERS Safety Report 8134289-2 (Version None)
Quarter: 2012Q1

REPORT INFORMATION
  Report Type: 
  Country: None (occurrence: None)
  Receive Date: 20120208
  Receipt Date: 20120125
  Transmission Date: 20120608
  Serious: Yes (Death)
  Sender: FDA-Public Use
  Company Number: ABR_00275_2011

PATIENT
  Sex: Female
  Weight: 25.7 kg

DRUGS (23)
  1. MIDAZOLAM [Concomitant]
  2. CLOBAZAM [Concomitant]
  3. AMPHOTERICIN B [Suspect]
     Indication: PNEUMONIA
     Dosage: SEE IMAGE
     Route: 042
     Dates: start: 20100301, end: 20100406
  4. AMPHOTERICIN B [Suspect]
     Indication: PNEUMONIA
     Dosage: SEE IMAGE
     Route: 042
     Dates: start: 20100407, end: 20100412
  5. TAZOBACTAM [Concomitant]
  6. GABAPENTIN [Concomitant]
  7. NATURAL ALUMINUM SILICATE [Concomitant]
  8. MONOAMMONIUM [Concomitant]
  9. VALPROATE SODIUM [Concomitant]
  10. CARBOCISTEINE LYSINE [Concomitant]
  11. BUDESONIDE [Concomitant]
  12. TEICOPLANIN [Concomitant]
  13. CLONIDINE HCL [Concomitant]
  14. ANTIBIOTICS-RESISTANT LACTIC ACID BACTERIAE [Concomitant]
  15. ALBUMIN TANNATE [Concomitant]
  16. MINOCYCLINE HYDROCHLORIDE [Concomitant]
  17. ERYTHROCIN [Suspect]
     Indication: PRIMARY CILIARY DYSKINESIA
     Dosage: ([2 IN 1 DAY, AFTER BREAKFAST AND SUPPER (200 MG, 2 IN 1 DAY, AFTER BREAKFAST AND SUPPER)] ORAL)
     Route: 048
     Dates: start: 20050101, end: 20100412
  18. PHENOBARBITAL TAB [Concomitant]
  19. AMBROXOL HYDROCHLORIDE [Concomitant]
  20. DORIPENEM MONOHYDRATE [Concomitant]
  21. ETHYL LOFLAZEPATE [Concomitant]
  22. PRANLUKAST [Concomitant]
  23. SODIUM BROMIDE [Concomitant]

REACTIONS (7)
  - ANURIA [None]
  - DISSEMINATED INTRAVASCULAR COAGULATION [None]
  - PANCREATITIS ACUTE [None]
  - RESPIRATORY FAILURE [None]
  - CARDIAC ARREST [None]
  - BLOOD PRESSURE DECREASED [None]
  - ACIDOSIS [None]
